FAERS Safety Report 7945252-6 (Version None)
Quarter: 2011Q4

REPORT INFORMATION
  Report Type: 
  Country: None (occurrence: None)
  Receive Date: 20111129
  Receipt Date: 20110915
  Transmission Date: 20120403
  Serious: Yes (Other)
  Sender: FDA-Public Use
  Company Number: US-GLAXOSMITHKLINE-A0944788A

PATIENT
  Age: 7 Year
  Sex: Female

DRUGS (2)
  1. FLOVENT [Suspect]
     Indication: ASTHMA
     Dosage: 1PUFF TWICE PER DAY
     Route: 055
     Dates: start: 20110401
  2. ALBUTEROL [Concomitant]

REACTIONS (5)
  - ORAL MUCOSAL ERYTHEMA [None]
  - BRONCHITIS [None]
  - ASTHMA [None]
  - PHARYNGITIS [None]
  - MALAISE [None]
